FAERS Safety Report 21072125 (Version 1)
Quarter: 2022Q3

REPORT INFORMATION
  Report Type: Spontaneous
  Country: US (occurrence: None)
  Receive Date: 20220712
  Receipt Date: 20220712
  Transmission Date: 20221027
  Serious: Yes (Hospitalization)
  Sender: FDA-Public Use
  Company Number: None

PATIENT
  Age: 29 Year
  Sex: Female
  Weight: 73.03 kg

DRUGS (1)
  1. SUBLOCADE [Suspect]
     Active Substance: BUPRENORPHINE
     Indication: Drug use disorder
     Dosage: FREQUENCY : MONTHLY;?
     Route: 058
     Dates: start: 20220601, end: 20220628

REACTIONS (2)
  - Oedema peripheral [None]
  - Neuralgia [None]

NARRATIVE: CASE EVENT DATE: 20220628
